FAERS Safety Report 9683126 (Version 1)
Quarter: 2013Q4

REPORT INFORMATION
  Report Type: Spontaneous
  Country: US (occurrence: None)
  Receive Date: 20131111
  Receipt Date: 20131111
  Transmission Date: 20140711
  Serious: Yes (Hospitalization)
  Sender: FDA-Public Use
  Company Number: None

PATIENT
  Age: 69 Year
  Sex: Male
  Weight: 77.2 kg

DRUGS (6)
  1. CARBOPLATIN [Suspect]
  2. PACLITAXEL [Suspect]
  3. RIDAFOROLIMUS [Suspect]
  4. CRESTOR [Concomitant]
  5. FLOMAX [Concomitant]
  6. ASPIRIN [Concomitant]

REACTIONS (3)
  - Disease progression [None]
  - Nausea [None]
  - Vomiting [None]
